FAERS Safety Report 13665566 (Version 1)
Quarter: 2017Q2

REPORT INFORMATION
  Report Type: Spontaneous
  Country: GB (occurrence: GB)
  Receive Date: 20170619
  Receipt Date: 20170619
  Transmission Date: 20170830
  Serious: Yes (Disabling, Other)
  Sender: FDA-Public Use
  Company Number: GB-MYLANLABS-2017M1036149

PATIENT

DRUGS (9)
  1. PREGABALIN. [Concomitant]
     Active Substance: PREGABALIN
     Dosage: 150 MG, BID
  2. ZOLMITRIPTAN. [Concomitant]
     Active Substance: ZOLMITRIPTAN
  3. ORAMORPH [Concomitant]
     Active Substance: MORPHINE SULFATE
  4. SALBUTAMOL [Concomitant]
     Active Substance: ALBUTEROL
     Dosage: UNK
  5. TOSTRAN [Concomitant]
     Active Substance: TESTOSTERONE
  6. CLENIL MODULITE [Concomitant]
     Active Substance: BECLOMETHASONE DIPROPIONATE
     Dosage: UNK
  7. INDOMETACIN [Concomitant]
     Active Substance: INDOMETHACIN
  8. TRAMADOL. [Suspect]
     Active Substance: TRAMADOL
     Indication: NEURALGIA
     Dosage: ESCALATING TO 200MG SR BD
     Route: 048
     Dates: start: 20130712
  9. RAMIPRIL. [Concomitant]
     Active Substance: RAMIPRIL

REACTIONS (6)
  - Cortisol decreased [Unknown]
  - Adrenocortical insufficiency acute [Unknown]
  - Endocrine toxicity [Not Recovered/Not Resolved]
  - Withdrawal syndrome [Unknown]
  - Androgen deficiency [Unknown]
  - Malaise [Unknown]

NARRATIVE: CASE EVENT DATE: 201604
